FAERS Safety Report 19182122 (Version 2)
Quarter: 2021Q2

REPORT INFORMATION
  Report Type: Spontaneous
  Country: US (occurrence: US)
  Receive Date: 20210426
  Receipt Date: 20210426
  Transmission Date: 20210717
  Serious: No
  Sender: FDA-Public Use
  Company Number: US-PFIZER INC-2020467696

PATIENT
  Age: 54 Year
  Sex: Male

DRUGS (2)
  1. CAVERJECT [Suspect]
     Active Substance: ALPROSTADIL
     Dosage: UNK, ALTERNATE DAY (USE 1 KIT EVERY OTHER DAY)
     Route: 017
  2. CAVERJECT IMPULSE [Suspect]
     Active Substance: ALPROSTADIL
     Dosage: 20 UG, DAILY
     Route: 017

REACTIONS (2)
  - Visual impairment [Unknown]
  - Off label use [Unknown]
